FAERS Safety Report 5416552-9 (Version None)
Quarter: 2007Q3

REPORT INFORMATION
  Report Type: 
  Country: None (occurrence: None)
  Receive Date: 20070814
  Receipt Date: 20070814
  Transmission Date: 20080115
  Serious: No
  Sender: FDA-Public Use
  Company Number: None

PATIENT
  Age: 41 Year
  Sex: Female

DRUGS (1)
  1. LIDOCAINE 1% [Suspect]
     Dosage: 500MG ONCE ANESTHETIC-IV
     Route: 042
     Dates: start: 20070719

REACTIONS (1)
  - DRUG INEFFECTIVE [None]
